FAERS Safety Report 6347829-0 (Version None)
Quarter: 2009Q3

REPORT INFORMATION
  Report Type: 
  Country: None (occurrence: None)
  Receive Date: 20090910
  Receipt Date: 20090901
  Transmission Date: 20100115
  Serious: Yes (Hospitalization)
  Sender: FDA-Public Use
  Company Number: B0590751A

PATIENT
  Sex: Female

DRUGS (7)
  1. AUGMENTIN '125' [Suspect]
     Dosage: 1G THREE TIMES PER DAY
     Route: 048
     Dates: start: 20090217, end: 20090224
  2. CYMBALTA [Concomitant]
     Dosage: 60MG PER DAY
     Route: 048
  3. TERALITHE [Concomitant]
     Dosage: 1UNIT PER DAY
     Route: 048
  4. TERCIAN [Concomitant]
     Dosage: 10DROP THREE TIMES PER DAY
     Route: 048
  5. SERESTA [Concomitant]
     Dosage: 50MG PER DAY
     Route: 048
  6. INEXIUM [Concomitant]
     Dosage: 20MG PER DAY
     Route: 048
  7. LEVOTHYROXINE SODIUM [Concomitant]
     Dosage: 25MCG PER DAY
     Route: 048

REACTIONS (5)
  - DERMATITIS [None]
  - PRURITUS [None]
  - RASH MACULAR [None]
  - TOXIC SKIN ERUPTION [None]
  - URTICARIA [None]
